FAERS Safety Report 4732224-8 (Version None)
Quarter: 2005Q3

REPORT INFORMATION
  Report Type: 
  Country: None (occurrence: None)
  Receive Date: 20050725
  Receipt Date: 20040720
  Transmission Date: 20060218
  Serious: Yes (Death, Other)
  Sender: FDA-Public Use
  Company Number: USA-2004-0016073

PATIENT
  Age: 34 Year
  Sex: Male
  Weight: 114.7 kg

DRUGS (5)
  1. MORPHINE SULFATE [Suspect]
  2. ALPRAZOLAM [Suspect]
  3. COCAINE (COCAINE) [Suspect]
  4. TEMAZEPAM [Suspect]
  5. BUPROPION HCL [Suspect]

REACTIONS (4)
  - ACCIDENTAL OVERDOSE [None]
  - DYSARTHRIA [None]
  - GAIT DISTURBANCE [None]
  - POLYSUBSTANCE ABUSE [None]
